FAERS Safety Report 24216732 (Version 2)
Quarter: 2024Q3

REPORT INFORMATION
  Report Type: Spontaneous
  Country: IT (occurrence: IT)
  Receive Date: 20240816
  Receipt Date: 20240916
  Transmission Date: 20241016
  Serious: Yes (Hospitalization, Other)
  Sender: BRISTOL MYERS SQUIBB
  Company Number: None

PATIENT
  Age: 66 Year
  Sex: Female

DRUGS (1)
  1. ABATACEPT [Suspect]
     Active Substance: ABATACEPT
     Indication: Rheumatoid arthritis
     Dosage: 125 MG PER WEEK
     Route: 058
     Dates: start: 20190424, end: 20240710

REACTIONS (1)
  - Synovial sarcoma [Not Recovered/Not Resolved]

NARRATIVE: CASE EVENT DATE: 20240710
